FAERS Safety Report 19677886 (Version 2)
Quarter: 2021Q3

REPORT INFORMATION
  Report Type: Report from Study
  Country: US (occurrence: US)
  Receive Date: 20210809
  Receipt Date: 20210902
  Transmission Date: 20211014
  Serious: Yes (Hospitalization, Other)
  Sender: FDA-Public Use
  Company Number: US-BAYER-2021-164938

PATIENT
  Age: 39 Year
  Sex: Female
  Weight: 51.7 kg

DRUGS (5)
  1. ADEMPAS [Suspect]
     Active Substance: RIOCIGUAT
     Indication: PULMONARY ARTERIAL HYPERTENSION
     Dosage: 1.5 MG, TID
     Route: 048
  2. ADEMPAS [Suspect]
     Active Substance: RIOCIGUAT
     Indication: PULMONARY ARTERIAL HYPERTENSION
     Dosage: UNK
     Dates: start: 20150414
  3. OPSUMIT [Concomitant]
     Active Substance: MACITENTAN
     Dosage: UNK
  4. ADEMPAS [Suspect]
     Active Substance: RIOCIGUAT
     Indication: PULMONARY ARTERIAL HYPERTENSION
     Dosage: 2.5 MG, TID
     Route: 048
  5. VELETRI [Concomitant]
     Active Substance: EPOPROSTENOL
     Dosage: 50 NANOGRAM PER KILOGRAM

REACTIONS (5)
  - Abdominal pain upper [None]
  - Cardiac failure congestive [None]
  - Gastric disorder [None]
  - Emergency care [None]
  - Supraventricular tachycardia [Unknown]

NARRATIVE: CASE EVENT DATE: 20210529
